FAERS Safety Report 7786696-5 (Version None)
Quarter: 2011Q3

REPORT INFORMATION
  Report Type: 
  Country: None (occurrence: None)
  Receive Date: 20110929
  Receipt Date: 20110926
  Transmission Date: 20111222
  Serious: Yes (Other)
  Sender: FDA-Public Use
  Company Number: US-PFIZER INC-2011228896

PATIENT
  Sex: Male
  Weight: 61 kg

DRUGS (8)
  1. SILDENAFIL CITRATE [Suspect]
     Indication: LOSS OF LIBIDO
     Dosage: 100 MG, UNK
     Route: 048
     Dates: start: 20110101
  2. GABAPENTIN [Suspect]
     Indication: BIPOLAR DISORDER
     Dosage: 200 MG, 3X/DAY
     Route: 048
     Dates: start: 20080101
  3. BUSPIRONE [Suspect]
     Indication: BIPOLAR DISORDER
     Dosage: 10 MG, 3X/DAY
     Route: 048
     Dates: start: 20080101
  4. CITALOPRAM [Suspect]
     Indication: BIPOLAR DISORDER
     Dosage: 60 MG, DAILY
     Route: 048
     Dates: start: 20080101
  5. VARDENAFIL [Suspect]
     Indication: LOSS OF LIBIDO
     Dosage: 30 MG, UNK
     Route: 048
     Dates: start: 20110101
  6. PRAVASTATIN [Suspect]
     Indication: BLOOD CHOLESTEROL INCREASED
     Dosage: 40 MG, DAILY
     Route: 048
  7. CITALOPRAM [Suspect]
     Dosage: 40 MG, DAILY
     Route: 048
  8. CLONAZEPAM [Suspect]
     Indication: BIPOLAR DISORDER
     Dosage: 1 MG, 3X/DAY
     Route: 048
     Dates: start: 20080101

REACTIONS (4)
  - BLOOD CHOLESTEROL INCREASED [None]
  - FEELING ABNORMAL [None]
  - DRUG INEFFECTIVE [None]
  - LOSS OF LIBIDO [None]
